FAERS Safety Report 5468402-2 (Version None)
Quarter: 2007Q3

REPORT INFORMATION
  Report Type: 
  Country: None (occurrence: None)
  Receive Date: 20070926
  Receipt Date: 20070914
  Transmission Date: 20080115
  Serious: Yes (Other)
  Sender: FDA-Public Use
  Company Number: JP-ROCHE-517694

PATIENT
  Sex: Female

DRUGS (2)
  1. ANEXATE TAB [Suspect]
     Indication: COLONOSCOPY
     Route: 030
     Dates: start: 20070814, end: 20070814
  2. DORMICUM (INJ) [Suspect]
     Indication: COLONOSCOPY
     Dosage: REPORTED AS DORMICUM
     Route: 030
     Dates: start: 20070814, end: 20070814

REACTIONS (1)
  - HEPATIC FUNCTION ABNORMAL [None]
